FAERS Safety Report 4991715-5 (Version None)
Quarter: 2006Q2

REPORT INFORMATION
  Report Type: 
  Country: None (occurrence: None)
  Receive Date: 20060504
  Receipt Date: 20060426
  Transmission Date: 20061013
  Serious: Yes (Hospitalization)
  Sender: FDA-Public Use
  Company Number: FR-GLAXOSMITHKLINE-B0421484A

PATIENT
  Age: 59 Year
  Sex: Female
  Weight: 51 kg

DRUGS (17)
  1. FLIXOTIDE [Suspect]
     Dosage: 2PUFF PER DAY
     Route: 055
     Dates: start: 20060115
  2. HYDROCORTISONE [Suspect]
     Indication: ADRENAL INSUFFICIENCY
     Dosage: 20MG PER DAY
     Route: 048
     Dates: start: 20060220
  3. SEREVENT [Concomitant]
     Route: 065
  4. KALETRA [Concomitant]
     Route: 048
  5. FUZEON [Concomitant]
     Route: 065
  6. REYATAZ [Concomitant]
     Route: 065
  7. DAPSONE [Concomitant]
     Route: 048
  8. ALDARA [Concomitant]
     Route: 065
  9. NICOTINE PATCHES [Concomitant]
     Route: 061
  10. GAVISCON [Concomitant]
     Route: 065
  11. TRIFLUCAN [Concomitant]
     Route: 048
  12. PARENTERAL ALIMENTATION [Concomitant]
     Route: 065
  13. PYRIMETHAMINE TAB [Concomitant]
     Route: 048
  14. COVERSYL [Concomitant]
     Route: 048
  15. AIROMIR [Concomitant]
     Route: 065
  16. TENORMIN [Concomitant]
     Indication: TACHYCARDIA PAROXYSMAL
     Route: 048
  17. QUESTRAN [Concomitant]
     Route: 065

REACTIONS (4)
  - BLOOD CORTISOL DECREASED [None]
  - BLOOD INSULIN INCREASED [None]
  - HYPERGLYCAEMIA [None]
  - HYPOGLYCAEMIA [None]
